FAERS Safety Report 5581843-8 (Version None)
Quarter: 2008Q1

REPORT INFORMATION
  Report Type: 
  Country: None (occurrence: None)
  Receive Date: 20080104
  Receipt Date: 20071207
  Transmission Date: 20080703
  Serious: No
  Sender: FDA-Public Use
  Company Number: US-BAYER-200712172BCC

PATIENT
  Sex: Male
  Weight: 91 kg

DRUGS (4)
  1. ALEVE [Suspect]
     Indication: ARTHRALGIA
     Dosage: TOTAL DAILY DOSE: 880 MG  UNIT DOSE: 220 MG
     Route: 048
  2. ONE A DAY CHOLESTEROL PLUS [Suspect]
     Indication: ROUTINE HEALTH MAINTENANCE
     Route: 048
     Dates: start: 20070706
  3. ASPIRIN [Suspect]
     Indication: ISCHAEMIC HEART DISEASE PROPHYLAXIS
     Dosage: TOTAL DAILY DOSE: 81 MG  UNIT DOSE: 81 MG
     Route: 048
  4. GLUCOSAMINE [Concomitant]

REACTIONS (1)
  - FAECES DISCOLOURED [None]
